FAERS Safety Report 7596791-1 (Version None)
Quarter: 2011Q3

REPORT INFORMATION
  Report Type: 
  Country: None (occurrence: None)
  Receive Date: 20110708
  Receipt Date: 20110628
  Transmission Date: 20111222
  Serious: Yes (Death, Life-Threatening, Hospitalization, Other)
  Sender: FDA-Public Use
  Company Number: JP-CELGENEUS-087-21880-11031931

PATIENT
  Sex: Female

DRUGS (22)
  1. LASIX [Concomitant]
     Dosage: 10 MILLIGRAM
     Route: 048
     Dates: start: 20110210
  2. LASIX [Concomitant]
     Dosage: 40 MILLIGRAM
     Route: 048
     Dates: start: 20110413, end: 20110419
  3. SULFAMETHOXAZOLE [Concomitant]
     Indication: PROPHYLAXIS
     Dosage: 1 TABLET
     Route: 048
     Dates: start: 20110210, end: 20110506
  4. MAGMITT [Concomitant]
     Indication: PROPHYLAXIS
     Dosage: 1.5 GRAM
     Route: 048
     Dates: start: 20110210, end: 20110506
  5. CARVEDILOL [Concomitant]
     Dosage: 5 MILLIGRAM
     Route: 048
     Dates: start: 20110413, end: 20110419
  6. LENIMEC [Concomitant]
     Dosage: 1.25 MILLIGRAM
     Route: 048
     Dates: start: 20110413, end: 20110419
  7. PROTECADIN [Concomitant]
     Indication: PROPHYLAXIS
     Dosage: 20 MILLIGRAM
     Route: 048
     Dates: start: 20110210, end: 20110506
  8. DIFLUCAN [Concomitant]
     Indication: PROPHYLAXIS
     Dosage: 100 MILLIGRAM
     Route: 048
     Dates: start: 20110210, end: 20110506
  9. SENNOSIDE [Concomitant]
     Indication: PROPHYLAXIS
     Dosage: 24 MILLIGRAM
     Route: 048
     Dates: start: 20110210, end: 20110506
  10. ASPIRIN [Concomitant]
     Indication: PROPHYLAXIS
     Dosage: 100 MILLIGRAM
     Route: 048
     Dates: start: 20110210
  11. LENDORMIN D [Concomitant]
     Indication: PROPHYLAXIS
     Dosage: .25 MILLIGRAM
     Route: 048
     Dates: start: 20110210, end: 20110506
  12. PREDOPA [Concomitant]
     Dosage: 600 MILLIGRAM
     Route: 041
     Dates: start: 20110502, end: 20110506
  13. REVLIMID [Suspect]
     Indication: MULTIPLE MYELOMA
     Dosage: 10 MILLIGRAM
     Route: 048
     Dates: start: 20110210, end: 20110220
  14. REVLIMID [Suspect]
     Dosage: 5 MILLIGRAM
     Route: 048
     Dates: start: 20110414, end: 20110418
  15. DEXAMETHASONE [Concomitant]
     Dosage: 40 MILLIGRAM
     Route: 048
     Dates: start: 20110305, end: 20110407
  16. LIPITOR [Concomitant]
     Dosage: 10 MILLIGRAM
     Route: 048
     Dates: start: 20110210, end: 20110506
  17. ALDACTONE [Concomitant]
     Dosage: 25 MILLIGRAM
     Route: 048
     Dates: start: 20110413, end: 20110419
  18. ASPARA-CA [Concomitant]
     Dosage: 600 MILLIGRAM
     Route: 048
     Dates: start: 20110210, end: 20110506
  19. GASLON N [Concomitant]
     Indication: PROPHYLAXIS
     Dosage: 2 MILLIGRAM
     Route: 048
     Dates: start: 20110210, end: 20110506
  20. REVLIMID [Suspect]
     Dosage: 5 MILLIGRAM
     Route: 048
     Dates: start: 20110305, end: 20110325
  21. DEXAMETHASONE [Concomitant]
     Indication: MULTIPLE MYELOMA
     Dosage: 40 MILLIGRAM
     Route: 048
     Dates: start: 20110210, end: 20110303
  22. RED BLOOD CELLS [Concomitant]
     Dosage: 2 UNITS
     Route: 041
     Dates: start: 20110218, end: 20110218

REACTIONS (3)
  - NEUTROPENIA [None]
  - ACUTE MYELOID LEUKAEMIA [None]
  - THROMBOCYTOPENIA [None]
